FAERS Safety Report 18947555 (Version 2)
Quarter: 2021Q2

REPORT INFORMATION
  Report Type: Report from Study
  Country: BE (occurrence: BE)
  Receive Date: 20210226
  Receipt Date: 20210408
  Transmission Date: 20210717
  Serious: Yes (Hospitalization)
  Sender: FDA-Public Use
  Company Number: BE-PFIZER INC-2021195082

PATIENT
  Age: 73 Year
  Sex: Male
  Weight: 79 kg

DRUGS (3)
  1. PACLITAXEL. [Suspect]
     Active Substance: PACLITAXEL
     Indication: BLADDER TRANSITIONAL CELL CARCINOMA
     Dosage: 153 MG, CYCLIC/D1 AND D15, Q4W
     Route: 042
     Dates: start: 20210201
  2. GEMCITABINE HYDROCHLORIDE. [Suspect]
     Active Substance: GEMCITABINE HYDROCHLORIDE
     Indication: BLADDER TRANSITIONAL CELL CARCINOMA
     Dosage: 1919 MG, CYCLIC(D1 AND D14, Q4W)
     Route: 042
     Dates: start: 20210201
  3. AVELUMAB [Suspect]
     Active Substance: AVELUMAB
     Indication: BLADDER TRANSITIONAL CELL CARCINOMA
     Dosage: 790 MG, CYCLIC(ONCE EVERY TWO WEEKS)
     Route: 042
     Dates: start: 20210201

REACTIONS (3)
  - Pyelonephritis [Recovered/Resolved]
  - Acute respiratory failure [Recovered/Resolved]
  - Acute kidney injury [Recovered/Resolved]

NARRATIVE: CASE EVENT DATE: 20210213
